FAERS Safety Report 26117348 (Version 1)
Quarter: 2025Q4

REPORT INFORMATION
  Report Type: Spontaneous
  Country: US (occurrence: None)
  Receive Date: 20251203
  Receipt Date: 20251203
  Transmission Date: 20260117
  Serious: Yes (Other)
  Sender: FDA-CTU
  Company Number: None

PATIENT
  Sex: Male

DRUGS (11)
  1. POMALYST [Suspect]
     Active Substance: POMALIDOMIDE
     Indication: Plasma cell myeloma
     Dosage: TAKE 1 CAPSULE ( 4 MG) BY MOUTH EVERY DAY ON DAYS 1-21 OF 28 DAY CYCLE
     Route: 048
     Dates: start: 20231005
  2. ACETAMINOPHN TAB 325MG [Concomitant]
  3. ACYCLOVIR [Concomitant]
     Active Substance: ACYCLOVIR
  4. ALBUTEROL AER HFA [Concomitant]
  5. ASPIRIN 81 TAB 81 MG EC [Concomitant]
  6. BAQSIMI ONE POW 3MG/DOSE [Concomitant]
  7. CODEINE POW PHOSPHAT [Concomitant]
  8. CYANOCOBALAM INJ 1000MCG [Concomitant]
  9. DARZALEX SOL FASPRO [Concomitant]
  10. DEXAMETHASONE [Concomitant]
     Active Substance: DEXAMETHASONE
  11. DIPHENHYDRAM CAP 25MG [Concomitant]

REACTIONS (7)
  - Diverticulitis [None]
  - Osteolysis [None]
  - Metastases to bone [None]
  - Muscular weakness [None]
  - Paraproteinaemia [None]
  - Light chain analysis increased [None]
  - Clostridium test [None]
